FAERS Safety Report 22538041 (Version 1)
Quarter: 2023Q2

REPORT INFORMATION
  Report Type: Report from Study
  Country: IT (occurrence: IT)
  Receive Date: 20230608
  Receipt Date: 20230608
  Transmission Date: 20230722
  Serious: Yes (Other)
  Sender: FDA-Public Use
  Company Number: None

PATIENT
  Age: 38 Year
  Sex: Male
  Weight: 77 kg

DRUGS (4)
  1. OXALIPLATIN [Suspect]
     Active Substance: OXALIPLATIN
     Indication: Adenocarcinoma of colon
     Dosage: DOSAGE: 240 UNIT OF MEASUREMENT: MILLIGRAMS FREQUENCY OF ADMINISTRATION:?CYCLIC
     Dates: start: 20230414
  2. ONDANSETRON [Concomitant]
     Active Substance: ONDANSETRON
     Dosage: DOSAGE: 8 UNIT OF MEASUREMENT: MILLIGRAMS
  3. OMEPRAZOLE [Concomitant]
     Active Substance: OMEPRAZOLE
     Dosage: DOSAGE: 20 UNIT OF MEASUREMENT: MILLIGRAMS. ROUTE OF ADMINISTRATION: ORAL
  4. CAPECITABINE [Concomitant]
     Active Substance: CAPECITABINE
     Dosage: DOSAGE: 3500 UNIT OF MEASUREMENT: MILLIGRAMS ROUTE OF ADMINISTRATION: ORAL
     Dates: start: 20230414

REACTIONS (1)
  - Folliculitis [Recovering/Resolving]

NARRATIVE: CASE EVENT DATE: 20230505
